FAERS Safety Report 12170674 (Version 1)
Quarter: 2016Q1

REPORT INFORMATION
  Report Type: Spontaneous
  Country: DE (occurrence: DE)
  Receive Date: 20160311
  Receipt Date: 20160311
  Transmission Date: 20160526
  Serious: Yes (Congenital Anomaly)
  Sender: FDA-Public Use
  Company Number: DE-SUN PHARMACEUTICAL INDUSTRIES LTD-2016RR-112935

PATIENT

DRUGS (6)
  1. CITALOPRAM [Suspect]
     Active Substance: CITALOPRAM HYDROBROMIDE
     Indication: DEPRESSION
     Dosage: 0.-30.0 GESTATIONAL WEEK
     Route: 064
     Dates: start: 20141214, end: 20150915
  2. IBUPROFEN. [Concomitant]
     Active Substance: IBUPROFEN
     Indication: HEADACHE
     Dosage: 19.-20. GESTATIONAL WEEK
     Route: 064
  3. CITALOPRAM [Suspect]
     Active Substance: CITALOPRAM HYDROBROMIDE
     Indication: DEPRESSION
     Dosage: 10 MG, DAILY, FROM GW 30 ONWARDS, UNTIL 39.2 GW
     Route: 064
  4. LASEA [Concomitant]
     Indication: SELF-MEDICATION
     Dosage: 80 MG, DAILY; 0.-6. GESTATIONAL WEEK
     Route: 064
  5. TAVOR (LORAZEPAM) [Concomitant]
     Active Substance: LORAZEPAM
     Indication: PANIC ATTACK
     Dosage: 1 MG, DAILY, ON DEMAND, ABOUT 10 DOSES; 4.1.-8. GESTATIONAL WEEK
     Route: 064
  6. FOLIO FORTE [Concomitant]
     Active Substance: FOLIC ACID\VITAMINS
     Indication: PROPHYLAXIS OF NEURAL TUBE DEFECT
     Dosage: 0.8 MG, DAILY, 0.-39.2. GESTATIONAL WEEK
     Route: 064
     Dates: start: 20141214, end: 20150915

REACTIONS (3)
  - Atrial septal defect [Not Recovered/Not Resolved]
  - Haemangioma [Not Recovered/Not Resolved]
  - Right aortic arch [Not Recovered/Not Resolved]

NARRATIVE: CASE EVENT DATE: 20150915
